FAERS Safety Report 6704340-2 (Version None)
Quarter: 2010Q2

REPORT INFORMATION
  Report Type: 
  Country: None (occurrence: None)
  Receive Date: 20100430
  Receipt Date: 20100420
  Transmission Date: 20101027
  Serious: Yes (Other)
  Sender: FDA-Public Use
  Company Number: US-JNJFOC-20100405649

PATIENT
  Age: 50 Year
  Sex: Male
  Weight: 54.43 kg

DRUGS (3)
  1. INVEGA [Suspect]
     Indication: PARANOIA
     Route: 048
  2. INVEGA [Suspect]
     Route: 048
  3. LITHIUM [Concomitant]
     Indication: TARDIVE DYSKINESIA
     Dosage: DRUG STOPPED LATER IN 2009
     Route: 048

REACTIONS (9)
  - AMNESIA [None]
  - COGNITIVE DISORDER [None]
  - DYSGEUSIA [None]
  - EYE PAIN [None]
  - HEADACHE [None]
  - HEART RATE INCREASED [None]
  - HYPOAESTHESIA [None]
  - TARDIVE DYSKINESIA [None]
  - TREMOR [None]
